FAERS Safety Report 7277345-3 (Version None)
Quarter: 2011Q1

REPORT INFORMATION
  Report Type: 
  Country: None (occurrence: None)
  Receive Date: 20110131
  Receipt Date: 20100930
  Transmission Date: 20110831
  Serious: Yes (Other)
  Sender: FDA-Public Use
  Company Number: 2010SP053013

PATIENT
  Sex: Female

DRUGS (2)
  1. RIBAVIRIN [Suspect]
     Indication: HEPATITIS C
  2. PEGINTERFERON ALFA-2A [Suspect]
     Indication: HEPATITIS C
     Dosage: 180 MCG;QW'

REACTIONS (6)
  - MALAISE [None]
  - THROMBOCYTOPENIA [None]
  - ABDOMINAL PAIN UPPER [None]
  - ASPHYXIA [None]
  - PRURITUS [None]
  - DIZZINESS [None]
